FAERS Safety Report 12211497 (Version 1)
Quarter: 2016Q1

REPORT INFORMATION
  Report Type: Spontaneous
  Country: US (occurrence: US)
  Receive Date: 20160325
  Receipt Date: 20160325
  Transmission Date: 20160526
  Serious: No
  Sender: FDA-Public Use
  Company Number: US-BAYER-2016-058200

PATIENT
  Age: 82 Year
  Sex: Female
  Weight: 60.77 kg

DRUGS (1)
  1. ALEVE [Suspect]
     Active Substance: NAPROXEN SODIUM
     Indication: ARTHRITIS
     Dosage: 1 DF, FREQUENCY 3-4 PER DAY
     Route: 048

REACTIONS (2)
  - Product use issue [None]
  - Expired product administered [None]
